FAERS Safety Report 18501552 (Version 2)
Quarter: 2020Q4

REPORT INFORMATION
  Report Type: Spontaneous
  Country: NO (occurrence: NO)
  Receive Date: 20201113
  Receipt Date: 20201116
  Transmission Date: 20210114
  Serious: Yes (Hospitalization, Other)
  Sender: FDA-Public Use
  Company Number: NO-GLAXOSMITHKLINE-NO2020EME221204

PATIENT
  Age: 30 Year
  Sex: Male

DRUGS (2)
  1. VOLTAROL [Suspect]
     Active Substance: DICLOFENAC SODIUM
     Indication: MEDIAL TIBIAL STRESS SYNDROME
     Dosage: UNK
  2. VOLTAREN FORTE [Suspect]
     Active Substance: DICLOFENAC SODIUM
     Indication: MEDIAL TIBIAL STRESS SYNDROME
     Dosage: UNK UNK, BID

REACTIONS (13)
  - Application site rash [Unknown]
  - Social problem [Unknown]
  - Toxicity to various agents [Unknown]
  - Near death experience [Unknown]
  - Oral mucosal blistering [Unknown]
  - Haemorrhage [Unknown]
  - Oral blood blister [Unknown]
  - Platelet count decreased [Unknown]
  - Epistaxis [Unknown]
  - Application site discolouration [Unknown]
  - Therapeutic product effect incomplete [Unknown]
  - Haemoptysis [Unknown]
  - Application site bruise [Unknown]
